FAERS Safety Report 4461559-1 (Version None)
Quarter: 2004Q3

REPORT INFORMATION
  Report Type: 
  Country: None (occurrence: None)
  Receive Date: 20040910
  Receipt Date: 20040528
  Transmission Date: 20050211
  Serious: Yes (Other)
  Sender: FDA-Public Use
  Company Number: TNZUS200400066 (0)

PATIENT
  Age: 79 Year
  Sex: Female
  Weight: 76.2 kg

DRUGS (1)
  1. INNOHEP [Suspect]
     Indication: DEEP VENOUS THROMBOSIS PROPHYLAXIS
     Dosage: 14000 IU, SUBCUTANEOUS
     Route: 058
     Dates: start: 20040517, end: 20040525

REACTIONS (2)
  - HEADACHE [None]
  - SUBDURAL HAEMATOMA [None]
